FAERS Safety Report 9935100 (Version 1)
Quarter: 2014Q1

REPORT INFORMATION
  Report Type: Spontaneous
  Country: BR (occurrence: BR)
  Receive Date: 20140228
  Receipt Date: 20140228
  Transmission Date: 20141002
  Serious: Yes (Other)
  Sender: FDA-Public Use
  Company Number: BR-PFIZER INC-2014055230

PATIENT
  Age: 67 Year
  Sex: Male
  Weight: 60 kg

DRUGS (4)
  1. LIPITOR [Suspect]
     Indication: BLOOD CHOLESTEROL INCREASED
     Dosage: UNK
     Route: 048
     Dates: start: 1991
  2. LIPITOR [Suspect]
     Indication: CARDIOVASCULAR EVENT PROPHYLAXIS
  3. CALCIUM + VIT D [Concomitant]
     Dosage: 2 TABLETS (CALCIUM ^600^, UNSPECIFIED UNIT, AND VITAMIN D), DAILY
     Dates: start: 1996
  4. ENALAPRIL MALEATE [Concomitant]
     Indication: BLOOD PRESSURE INCREASED
     Dosage: 2 TABLET (USPECIFIED UNIT), DAILY
     Dates: start: 1996

REACTIONS (1)
  - Prostate cancer [Unknown]
